FAERS Safety Report 6386188-4 (Version None)
Quarter: 2009Q4

REPORT INFORMATION
  Report Type: 
  Country: None (occurrence: None)
  Receive Date: 20091002
  Receipt Date: 20090924
  Transmission Date: 20100525
  Serious: Yes (Hospitalization)
  Sender: FDA-Public Use
  Company Number: FR-ABBOTT-09P-056-0597935-00

PATIENT
  Sex: Male

DRUGS (2)
  1. KALETRA [Suspect]
     Indication: PROPHYLAXIS AGAINST HIV INFECTION
     Dosage: 200/50 MG
     Route: 048
     Dates: start: 20090629, end: 20090712
  2. TRUVADA [Suspect]
     Indication: PROPHYLAXIS AGAINST HIV INFECTION
     Dosage: 200/245 MG
     Route: 048

REACTIONS (10)
  - CAROTID ARTERY STENOSIS [None]
  - DIZZINESS [None]
  - DRUG DOSE OMISSION [None]
  - INCORRECT DOSE ADMINISTERED [None]
  - NAUSEA [None]
  - NYSTAGMUS [None]
  - OCULOGYRIC CRISIS [None]
  - PHOTOPHOBIA [None]
  - VERTIGO [None]
  - VOMITING [None]
